FAERS Safety Report 7224765-9 (Version None)
Quarter: 2011Q1

REPORT INFORMATION
  Report Type: 
  Country: None (occurrence: None)
  Receive Date: 20110113
  Receipt Date: 20110105
  Transmission Date: 20110831
  Serious: Yes (Hospitalization)
  Sender: FDA-Public Use
  Company Number: JP-B.I. PHARMACEUTICALS,INC./RIDGEFIELD-2011-BP-00673YA

PATIENT
  Age: 80 Year
  Sex: Male

DRUGS (8)
  1. ISCOTIN [Concomitant]
     Route: 048
  2. RIFADIN [Concomitant]
  3. MAGMITT [Concomitant]
     Route: 048
  4. PURSENNID [Concomitant]
     Route: 048
  5. SELBEX [Concomitant]
     Route: 048
  6. HARNAL (TAMSULOSIN) ORODISPERSABLE CR [Suspect]
     Indication: BENIGN PROSTATIC HYPERPLASIA
     Dosage: 0.2MG, UNKNOWN/D
     Route: 048
  7. ARICEPT [Suspect]
     Dosage: 5MG, UNKNOWN/D
     Route: 048
  8. SEIBULE [Concomitant]
     Route: 048

REACTIONS (1)
  - HYPONATRAEMIA [None]
